FAERS Safety Report 15590646 (Version 1)
Quarter: 2018Q4

REPORT INFORMATION
  Report Type: Spontaneous
  Country: US (occurrence: US)
  Receive Date: 20181106
  Receipt Date: 20181106
  Transmission Date: 20190205
  Serious: No
  Sender: FDA-Public Use
  Company Number: US-NEOS THERAPEUTICS, LP-2018NEO00106

PATIENT
  Sex: Female
  Weight: 30.39 kg

DRUGS (6)
  1. ESSENTIAL OILS. [Concomitant]
     Active Substance: ESSENTIAL OILS
  2. DAILY MULTIVITAMIN [Concomitant]
     Active Substance: VITAMINS
  3. ADZENYS XR-ODT [Suspect]
     Active Substance: AMPHETAMINE
     Indication: ATTENTION DEFICIT/HYPERACTIVITY DISORDER
     Dosage: 9.4 MG, 1X/DAY
     Route: 048
     Dates: start: 201611
  4. ADZENYS XR-ODT [Suspect]
     Active Substance: AMPHETAMINE
     Dosage: 9.4 MG, 1X/DAY
     Route: 048
     Dates: end: 2018
  5. ADZENYS XR-ODT [Suspect]
     Active Substance: AMPHETAMINE
     Indication: ATTENTION DEFICIT/HYPERACTIVITY DISORDER
     Dosage: 12.5 MG, 1X/DAY
  6. PROBIOTICS [Concomitant]
     Active Substance: PROBIOTICS NOS

REACTIONS (10)
  - Product dose omission [Unknown]
  - Oropharyngeal pain [Not Recovered/Not Resolved]
  - Drug withdrawal syndrome [Not Recovered/Not Resolved]
  - Abdominal discomfort [Not Recovered/Not Resolved]
  - Yawning [Not Recovered/Not Resolved]
  - Sleep disorder [Recovered/Resolved]
  - Anxiety [Not Recovered/Not Resolved]
  - Decreased appetite [Recovering/Resolving]
  - Crying [Not Recovered/Not Resolved]
  - Fatigue [Not Recovered/Not Resolved]
